FAERS Safety Report 24790169 (Version 1)
Quarter: 2024Q4

REPORT INFORMATION
  Report Type: Spontaneous
  Country: US (occurrence: US)
  Receive Date: 20241230
  Receipt Date: 20241230
  Transmission Date: 20250114
  Serious: Yes (Hospitalization, Other)
  Sender: CIPLA
  Company Number: US-Provepharm SAS-2024000014

PATIENT

DRUGS (10)
  1. BUPROPION [Interacting]
     Active Substance: BUPROPION
     Indication: Major depression
     Dosage: 150 MILLIGRAM, QD
     Route: 065
  2. PAROXETINE [Interacting]
     Active Substance: PAROXETINE
     Indication: Major depression
     Dosage: 20 MILLIGRAM, QD
     Route: 065
  3. DAPSONE [Interacting]
     Active Substance: DAPSONE
     Indication: Antifungal prophylaxis
     Dosage: 100 MILLIGRAM, QD
     Route: 065
  4. METHYLENE BLUE [Interacting]
     Active Substance: METHYLENE BLUE
     Indication: Methaemoglobinaemia
     Dosage: 100 MILLIGRAM, 1 TOTAL
     Route: 042
  5. LEVOTHYROXINE [Concomitant]
     Active Substance: LEVOTHYROXINE
     Indication: Hypothyroidism
     Dosage: 88 MICROGRAM, QD
     Route: 065
  6. LORAZEPAM [Concomitant]
     Active Substance: LORAZEPAM
     Indication: Anxiety disorder
     Dosage: 1 MILLIGRAM, QD (AS NEEDED)
     Route: 065
  7. RITUXIMAB [Concomitant]
     Active Substance: RITUXIMAB
     Indication: Diffuse large B-cell lymphoma recurrent
     Dosage: UNK
     Route: 065
  8. DEXAMETHASONE [Concomitant]
     Active Substance: DEXAMETHASONE
     Indication: Diffuse large B-cell lymphoma recurrent
     Dosage: HIGH-DOSE
     Route: 065
  9. CYTARABINE [Concomitant]
     Active Substance: CYTARABINE
     Indication: Diffuse large B-cell lymphoma recurrent
     Dosage: UNK
     Route: 065
  10. OXALIPLATIN [Concomitant]
     Active Substance: OXALIPLATIN
     Indication: Diffuse large B-cell lymphoma recurrent
     Dosage: UNK
     Route: 065

REACTIONS (2)
  - Serotonin syndrome [Recovered/Resolved]
  - Drug interaction [Recovered/Resolved]
